FAERS Safety Report 25997177 (Version 1)
Quarter: 2025Q4

REPORT INFORMATION
  Report Type: Spontaneous
  Country: CN (occurrence: CN)
  Receive Date: 20251104
  Receipt Date: 20251104
  Transmission Date: 20260117
  Serious: Yes (Other)
  Sender: NOVARTIS
  Company Number: CN-002147023-NVSC2025CN168609

PATIENT

DRUGS (2)
  1. TRAMETINIB [Suspect]
     Active Substance: TRAMETINIB
     Indication: Langerhans^ cell histiocytosis
     Dosage: UNK
     Route: 065
  2. TRAMETINIB [Suspect]
     Active Substance: TRAMETINIB
     Indication: Erdheim-Chester disease

REACTIONS (4)
  - Erdheim-Chester disease [Recovered/Resolved]
  - Langerhans^ cell histiocytosis [Recovered/Resolved]
  - Malignant neoplasm progression [Recovered/Resolved]
  - Off label use [Unknown]
